FAERS Safety Report 9531829 (Version 2)
Quarter: 2013Q4

REPORT INFORMATION
  Report Type: Spontaneous
  Country: US (occurrence: US)
  Receive Date: 20130918
  Receipt Date: 20131007
  Transmission Date: 20140711
  Serious: No
  Sender: FDA-Public Use
  Company Number: US-PFIZER INC-2013264414

PATIENT
  Age: 68 Year
  Sex: Male

DRUGS (2)
  1. INLYTA [Suspect]
     Indication: PROSTATE CANCER
     Dosage: 5 MG, 2X/DAY
     Route: 048
     Dates: start: 20130107
  2. INLYTA [Suspect]
     Dosage: 3 MG, BID

REACTIONS (2)
  - Off label use [Unknown]
  - Diarrhoea [Recovering/Resolving]
